FAERS Safety Report 6559236-6 (Version None)
Quarter: 2010Q1

REPORT INFORMATION
  Report Type: 
  Country: None (occurrence: None)
  Receive Date: 20100129
  Receipt Date: 20090902
  Transmission Date: 20100710
  Serious: No
  Sender: FDA-Public Use
  Company Number: US-ABBOTT-09P-163-0594045-00

PATIENT
  Sex: Male

DRUGS (2)
  1. HUMIRA [Suspect]
     Indication: CROHN'S DISEASE
     Dates: start: 20090704
  2. IMURAN [Suspect]
     Indication: CROHN'S DISEASE
     Dates: start: 20060101, end: 20090817

REACTIONS (1)
  - THROMBOCYTOPENIA [None]
